FAERS Safety Report 16203122 (Version 2)
Quarter: 2019Q2

REPORT INFORMATION
  Report Type: Spontaneous
  Country: ES (occurrence: ES)
  Receive Date: 20190416
  Receipt Date: 20190515
  Transmission Date: 20190711
  Serious: Yes (Death, Other)
  Sender: FDA-Public Use
  Company Number: ES-009507513-1904ESP005470

PATIENT
  Age: 64 Year
  Sex: Male
  Weight: 87 kg

DRUGS (11)
  1. ZINPLAVA [Suspect]
     Active Substance: BEZLOTOXUMAB
     Indication: CLOSTRIDIUM DIFFICILE INFECTION
     Dosage: SINGLE DOSE
     Route: 041
     Dates: start: 20181018, end: 20181018
  2. LINEZOLID. [Concomitant]
     Active Substance: LINEZOLID
     Indication: INFECTION
     Dosage: 1200 MILLIGRAM, QD (600MG/12H)
     Route: 041
     Dates: start: 20181203, end: 20181206
  3. TACROLIMUS. [Concomitant]
     Active Substance: TACROLIMUS
     Indication: IMMUNOSUPPRESSION
     Dosage: 10 MILLIGRAM, QD (5MG/12H)
     Dates: start: 20180907, end: 20181206
  4. VANCOMYCIN [Suspect]
     Active Substance: VANCOMYCIN
     Indication: CLOSTRIDIUM DIFFICILE INFECTION
     Dosage: UNK
  5. PROPOFOL. [Concomitant]
     Active Substance: PROPOFOL
     Indication: SEDATION
     Dosage: 100 MILLIGRAM, QD (100MG/24H)
     Route: 041
     Dates: start: 20180912, end: 20181206
  6. FENTANYL. [Concomitant]
     Active Substance: FENTANYL
     Indication: SEDATION
     Dosage: VARIABLE
     Route: 041
     Dates: start: 20180912, end: 20181206
  7. PANTOPRAZOLE [Concomitant]
     Active Substance: PANTOPRAZOLE
     Indication: PROPHYLAXIS
     Dosage: 200 MILLIGRAM, QD (200MG/24H)
     Route: 041
     Dates: start: 20180907, end: 20181206
  8. AMPHOTERICIN B. [Concomitant]
     Active Substance: AMPHOTERICIN B
     Indication: ANTIFUNGAL TREATMENT
     Dosage: 270 MILLIGRAM, QD (270MG/24H)
     Route: 041
     Dates: start: 20181025, end: 20181206
  9. FUROSEMIDE. [Concomitant]
     Active Substance: FUROSEMIDE
     Indication: DIURETIC THERAPY
     Dosage: 160 MILLIGRAM, QD (160MG/24H)
     Route: 041
     Dates: start: 20181202, end: 20181206
  10. ISAVUCONAZONIUM [Concomitant]
     Active Substance: ISAVUCONAZONIUM
     Indication: ANTIFUNGAL TREATMENT
     Dosage: 200 MILLIGRAM, QD (200MG/24H)
     Route: 041
     Dates: start: 20181109, end: 20181206
  11. METHYLPREDNISOLONE. [Concomitant]
     Active Substance: METHYLPREDNISOLONE
     Indication: IMMUNOSUPPRESSION
     Dosage: 40 MILLIGRAM, QD (40MG/24H)
     Route: 041
     Dates: start: 20180907, end: 20181206

REACTIONS (6)
  - Multiple organ dysfunction syndrome [Unknown]
  - Pneumonia [Unknown]
  - Renal impairment [Unknown]
  - Death [Fatal]
  - Respiratory tract infection fungal [Unknown]
  - Septic shock [Unknown]

NARRATIVE: CASE EVENT DATE: 2018
